FAERS Safety Report 23289481 (Version 3)
Quarter: 2023Q4

REPORT INFORMATION
  Report Type: Spontaneous
  Country: US (occurrence: US)
  Receive Date: 20231212
  Receipt Date: 20231215
  Transmission Date: 20240110
  Serious: Yes (Hospitalization, Other)
  Sender: FDA-Public Use
  Company Number: US-MLMSERVICE-20231128-4691594-1

PATIENT
  Age: 69 Year
  Sex: Male

DRUGS (8)
  1. RITUXIMAB [Suspect]
     Active Substance: RITUXIMAB
     Indication: Immune thrombocytopenia
     Dosage: DAY 22
  2. RITUXIMAB [Suspect]
     Active Substance: RITUXIMAB
     Dosage: DAY 29, INFUSION
  3. PREDNISONE [Suspect]
     Active Substance: PREDNISONE
     Indication: Thrombocytopenic purpura
     Dosage: 50 MG, 2X/DAY (DAY 1)
  4. PREDNISONE [Suspect]
     Active Substance: PREDNISONE
     Dosage: 50 MG, 2X/DAY (DAY 25)
  5. PREDNISONE [Suspect]
     Active Substance: PREDNISONE
     Dosage: 80 MG, DAILY (DAY 29)
  6. PREDNISONE [Suspect]
     Active Substance: PREDNISONE
     Dosage: 60 MG, DAILY (DAY 32)
  7. IBRUTINIB [Suspect]
     Active Substance: IBRUTINIB
     Indication: Chronic lymphocytic leukaemia
     Dosage: 420 MG, DAILY (DAY 25)
  8. DEXAMETHASONE [Suspect]
     Active Substance: DEXAMETHASONE
     Indication: Thrombocytopenic purpura
     Dosage: 40 MG, DAILY (DAY15)

REACTIONS (7)
  - Enterococcal infection [Recovered/Resolved]
  - Necrotising fasciitis [Recovered/Resolved]
  - Staphylococcal sepsis [Recovered/Resolved]
  - Dermatophytosis [Recovered/Resolved]
  - Trichophytosis [Recovered/Resolved]
  - Immunosuppression [Recovered/Resolved]
  - Off label use [Unknown]
